FAERS Safety Report 5027724-X (Version None)
Quarter: 2006Q2

REPORT INFORMATION
  Report Type: 
  Country: None (occurrence: None)
  Receive Date: 20060428
  Receipt Date: 20060106
  Transmission Date: 20061013
  Serious: No
  Sender: FDA-Public Use
  Company Number: COT_0426_2006

PATIENT
  Age: 73 Year
  Sex: Female
  Weight: 68.9467 kg

DRUGS (13)
  1. VENTAVIS [Suspect]
     Indication: PULMONARY HYPERTENSION
     Dosage: 5 MCG 6TO9X/DAY IH
     Route: 055
     Dates: start: 20051116
  2. VENTAVIS [Suspect]
     Indication: PULMONARY HYPERTENSION
     Dosage: 5M MCG 6TO9X/DAY IH
     Route: 055
     Dates: start: 20051116
  3. COZAAR [Concomitant]
  4. PRAVACHOL [Concomitant]
  5. ZETIA [Concomitant]
  6. NEURONTIN [Concomitant]
  7. AMITRIPTYLINE HCL [Concomitant]
  8. NORVASC [Concomitant]
  9. TRACLEER [Concomitant]
  10. LANTUS [Concomitant]
  11. HUMALOG [Concomitant]
  12. DIGOXIN [Concomitant]
  13. OXYGEN [Concomitant]

REACTIONS (1)
  - LIP PAIN [None]
